FAERS Safety Report 15516242 (Version 1)
Quarter: 2018Q4

REPORT INFORMATION
  Report Type: Spontaneous
  Country: US (occurrence: US)
  Receive Date: 20181017
  Receipt Date: 20181017
  Transmission Date: 20190205
  Serious: Yes (Hospitalization)
  Sender: FDA-Public Use
  Company Number: None

PATIENT
  Age: 59 Year
  Sex: Female
  Weight: 58.5 kg

DRUGS (1)
  1. CEPHALEXIN. [Suspect]
     Active Substance: CEPHALEXIN
     Indication: OPEN FRACTURE
     Dosage: ?          QUANTITY:1 CAPSULE(S);?4 TIMES A DAY ORAL
     Route: 048

REACTIONS (6)
  - Shock [None]
  - Viral infection [None]
  - Muscle spasms [None]
  - Neutropenia [None]
  - Influenza [None]
  - Vomiting [None]

NARRATIVE: CASE EVENT DATE: 20181009
